FAERS Safety Report 5041930-X (Version None)
Quarter: 2006Q2

REPORT INFORMATION
  Report Type: 
  Country: None (occurrence: None)
  Receive Date: 20060627
  Receipt Date: 20060612
  Transmission Date: 20061013
  Serious: Yes (Hospitalization)
  Sender: FDA-Public Use
  Company Number: 14249

PATIENT
  Age: 68 Year
  Sex: Male
  Weight: 67.1 kg

DRUGS (19)
  1. CYTARABINE [Suspect]
     Indication: ACUTE MYELOID LEUKAEMIA
     Dates: start: 20060501
  2. MITOXANTRONE [Suspect]
     Indication: ACUTE MYELOID LEUKAEMIA
     Dates: start: 20060501
  3. ETOPOSIDE [Suspect]
     Indication: ACUTE MYELOID LEUKAEMIA
     Dates: start: 20060501
  4. CEP-701 [Suspect]
     Indication: ACUTE MYELOID LEUKAEMIA
     Dosage: 80 M G BID PO
     Route: 048
     Dates: start: 20060525, end: 20060528
  5. AMBISOME [Concomitant]
  6. ZOSYN [Concomitant]
  7. VANCOMYCIN [Concomitant]
  8. VALTREX [Concomitant]
  9. DEXAMETHASONE TAB [Concomitant]
  10. LASIX [Concomitant]
  11. DIPHENHYDRAMINE HCL [Concomitant]
  12. ACETAMINOPHEN [Concomitant]
  13. ALLOPURINOL [Concomitant]
  14. SODIUM CHLORIDE [Concomitant]
  15. ANZEMET [Concomitant]
  16. FLUOROMETHOLONE [Concomitant]
  17. PREGABALIN [Concomitant]
  18. CASPOFUNGIN [Concomitant]
  19. VITAMINS NOS [Concomitant]

REACTIONS (6)
  - CONDITION AGGRAVATED [None]
  - ENTEROCOCCAL INFECTION [None]
  - FEBRILE NEUTROPENIA [None]
  - HYPERNATRAEMIA [None]
  - MUCOSAL INFLAMMATION [None]
  - NEUTROPENIC INFECTION [None]
